FAERS Safety Report 15814398 (Version 1)
Quarter: 2019Q1

REPORT INFORMATION
  Report Type: Spontaneous
  Country: US (occurrence: US)
  Receive Date: 20190111
  Receipt Date: 20190111
  Transmission Date: 20190417
  Serious: No
  Sender: FDA-Public Use
  Company Number: US-PURDUE-USA-2018-0145092

PATIENT
  Sex: Male

DRUGS (2)
  1. BUPRENORPHINE. [Suspect]
     Active Substance: BUPRENORPHINE
     Indication: PAIN
     Dosage: 2 MG, BID
     Route: 060
     Dates: start: 2017
  2. GABAPENTIN. [Concomitant]
     Active Substance: GABAPENTIN
     Indication: NEUROPATHY PERIPHERAL
     Route: 065

REACTIONS (1)
  - Drug ineffective for unapproved indication [Not Recovered/Not Resolved]
